FAERS Safety Report 8959139 (Version 1)
Quarter: 2012Q4

REPORT INFORMATION
  Report Type: Spontaneous
  Country: US (occurrence: None)
  Receive Date: 20121128
  Receipt Date: 20121128
  Transmission Date: 20130627
  Serious: Yes (Other)
  Sender: FDA-Public Use
  Company Number: AUR-APL-2012-05021

PATIENT
  Age: 56 Year
  Sex: Male
  Weight: 113.4 kg

DRUGS (6)
  1. SERTRALINE (SERTRALINE) (SERTRALINE) [Suspect]
     Indication: BIPOLAR DISORDER
     Dosage: 200 mg (100 mg, 2 in 1 D),  Oral
     Route: 048
     Dates: start: 2011, end: 20121010
  2. ZOLOFT (SERTRALINE) [Suspect]
     Indication: BIPOLAR DISORDER
     Dosage: 200 mg (100 mg, 2 in 1 D), Oral
     Route: 048
     Dates: start: 2011
  3. AMLODIPINE (AMLODIPINE) [Concomitant]
  4. ATENOLOL (ATENOLOL) [Concomitant]
  5. FINASTERIDE (FINASTERIDE) [Concomitant]
  6. ATORVASTATIN (ATORVASTATIN) [Concomitant]

REACTIONS (3)
  - Mood swings [None]
  - Dysphonia [None]
  - Thinking abnormal [None]
